FAERS Safety Report 10208688 (Version 3)
Quarter: 2014Q2

REPORT INFORMATION
  Report Type: Spontaneous
  Country: DE (occurrence: DE)
  Receive Date: 20140530
  Receipt Date: 20140630
  Transmission Date: 20141212
  Serious: Yes (Death, Hospitalization, Other)
  Sender: FDA-Public Use
  Company Number: DE-GILEAD-2014-0103636

PATIENT
  Age: 51 Year
  Sex: Female
  Weight: 68 kg

DRUGS (6)
  1. SOVALDI [Suspect]
     Indication: HEPATITIS C
     Dosage: 400 MG, QD
     Route: 048
     Dates: start: 20140129, end: 20140524
  2. RIBAVIRIN [Concomitant]
     Indication: HEPATITIS C
     Dosage: 400 MG, QD
     Route: 048
     Dates: start: 20140129, end: 20140524
  3. CARVEDILOL [Concomitant]
     Indication: PORTAL HYPERTENSION
     Dosage: 12.5 MG, QD
     Route: 048
     Dates: start: 2013, end: 20140524
  4. TOREM                              /01036501/ [Concomitant]
     Indication: HEPATIC CIRRHOSIS
     Dosage: 30 MG, QD
     Route: 048
     Dates: end: 20140524
  5. ALDACTONE                          /00006201/ [Concomitant]
     Indication: HEPATIC CIRRHOSIS
     Dosage: 100 MG, QD
     Route: 048
  6. ZOPICLONE [Concomitant]
     Indication: SLEEP DISORDER
     Dosage: 7.5 MG, PRN
     Route: 048
     Dates: start: 2013, end: 20140524

REACTIONS (6)
  - Oedema [Fatal]
  - Renal impairment [Fatal]
  - Lactic acidosis [Fatal]
  - Renal failure acute [Fatal]
  - Circulatory collapse [Fatal]
  - Hepatic cirrhosis [Fatal]
